FAERS Safety Report 5855914-2 (Version None)
Quarter: 2008Q3

REPORT INFORMATION
  Report Type: 
  Country: None (occurrence: None)
  Receive Date: 20080825
  Receipt Date: 20080814
  Transmission Date: 20090109
  Serious: Yes (Other)
  Sender: FDA-Public Use
  Company Number: MX-ELI_LILLY_AND_COMPANY-MX200808002967

PATIENT
  Sex: Female
  Weight: 74.1 kg

DRUGS (13)
  1. GEMCITABINE HCL [Suspect]
     Indication: BREAST CANCER METASTATIC
     Dosage: 1000 MG/M2, OTHER
     Route: 042
     Dates: start: 20070915
  2. VINFLUNINE [Suspect]
     Indication: BREAST CANCER METASTATIC
     Dosage: 320 MG/M2, OTHER
     Route: 042
     Dates: start: 20070915, end: 20080324
  3. ZOFRAN [Concomitant]
     Dosage: UNK, UNKNOWN
     Route: 065
     Dates: start: 20080324, end: 20080329
  4. DEXAMETHASONE TAB [Concomitant]
     Dosage: UNK, UNKNOWN
     Route: 065
     Dates: start: 20080324, end: 20080329
  5. RANISEN [Concomitant]
     Dosage: UNK, UNKNOWN
     Route: 065
     Dates: start: 20080324, end: 20080329
  6. HEPARIN SODIUM [Concomitant]
     Dosage: UNK, UNKNOWN
     Route: 065
     Dates: start: 20080329, end: 20080329
  7. SUPRADOL [Concomitant]
     Dosage: UNK, UNKNOWN
     Route: 065
     Dates: start: 20080329, end: 20080329
  8. CEFTAZIDIME [Concomitant]
     Dosage: UNK, UNKNOWN
     Route: 065
     Dates: start: 20080329, end: 20080401
  9. FILGRASTIM [Concomitant]
     Dosage: UNK, UNKNOWN
     Route: 065
     Dates: start: 20080325, end: 20080329
  10. EPOGEN [Concomitant]
     Dates: start: 20080325, end: 20080329
  11. RANITIDINA BEXAL [Concomitant]
     Dosage: UNK, UNKNOWN
     Route: 065
     Dates: start: 20080329
  12. MELOX [Concomitant]
     Dosage: UNK, UNKNOWN
     Route: 065
     Dates: start: 20080324
  13. CLINDAMYCIN [Concomitant]
     Dosage: UNK, UNKNOWN
     Route: 065
     Dates: start: 20080401, end: 20080401

REACTIONS (1)
  - LEFT VENTRICULAR DYSFUNCTION [None]
